FAERS Safety Report 4636632-5 (Version None)
Quarter: 2005Q2

REPORT INFORMATION
  Report Type: 
  Country: None (occurrence: None)
  Receive Date: 20050414
  Receipt Date: 20050331
  Transmission Date: 20051028
  Serious: Yes (Hospitalization)
  Sender: FDA-Public Use
  Company Number: 2004CG02195

PATIENT
  Age: 64 Year
  Sex: Female

DRUGS (1)
  1. MOPRAL [Suspect]
     Indication: GASTROINTESTINAL DISORDER
     Dates: start: 20020101, end: 20040101

REACTIONS (1)
  - PERICARDITIS LUPUS [None]
